FAERS Safety Report 8517264-5 (Version None)
Quarter: 2012Q3

REPORT INFORMATION
  Report Type: 
  Country: None (occurrence: None)
  Receive Date: 20120718
  Receipt Date: 20120712
  Transmission Date: 20120928
  Serious: Yes (Death, Hospitalization)
  Sender: FDA-Public Use
  Company Number: US-PFIZER INC-2012130307

PATIENT
  Sex: Male
  Weight: 60.771 kg

DRUGS (7)
  1. VFEND [Suspect]
     Indication: CANDIDA PNEUMONIA
  2. VFEND [Suspect]
     Indication: CHRONIC OBSTRUCTIVE PULMONARY DISEASE
  3. ZYVOX [Suspect]
     Indication: EMPHYSEMA
  4. VFEND [Suspect]
     Indication: RESPIRATORY MONILIASIS
     Dosage: 200 MG, 2X/DAY
     Dates: start: 20120510, end: 20120501
  5. ZYVOX [Suspect]
     Indication: PNEUMONIA
  6. VFEND [Suspect]
     Indication: EMPHYSEMA
  7. ZYVOX [Suspect]
     Indication: CHRONIC OBSTRUCTIVE PULMONARY DISEASE
     Dosage: UNK

REACTIONS (3)
  - LUNG DISORDER [None]
  - APHAGIA [None]
  - PNEUMONIA [None]
